FAERS Safety Report 7012131-0 (Version None)
Quarter: 2010Q3

REPORT INFORMATION
  Report Type: 
  Country: None (occurrence: None)
  Receive Date: 20100922
  Receipt Date: 20100922
  Transmission Date: 20110219
  Serious: Yes (Other)
  Sender: FDA-Public Use
  Company Number: None

PATIENT
  Age: 75 Year
  Sex: Female
  Weight: 53.978 kg

DRUGS (1)
  1. RESTASIS [Suspect]
     Indication: EYE SWELLING
     Dosage: 1 DROP/EYE TWICE DAILY EYE
     Dates: start: 20100716, end: 20100806

REACTIONS (1)
  - HYPERSENSITIVITY [None]
